FAERS Safety Report 10976221 (Version 1)
Quarter: 2015Q2

REPORT INFORMATION
  Report Type: Report from Study
  Country: CZ (occurrence: CZ)
  Receive Date: 20150401
  Receipt Date: 20150401
  Transmission Date: 20150821
  Serious: Yes (Hospitalization)
  Sender: FDA-Public Use
  Company Number: CZ-TAKEDA-2015MPI000568

PATIENT

DRUGS (20)
  1. DEXAMETHASONE. [Suspect]
     Active Substance: DEXAMETHASONE
     Indication: AMYLOIDOSIS
     Dosage: 40 MG, QD
     Route: 048
     Dates: start: 20141230, end: 20150102
  2. HELICID                            /00661201/ [Concomitant]
     Dosage: 20 MG, UNK
  3. PYRIDOXIN [Concomitant]
     Active Substance: PYRIDOXINE
     Dosage: 2.5 MG, QD
  4. FRAXIPARINE                        /01437701/ [Concomitant]
     Active Substance: NADROPARIN CALCIUM
     Route: 058
  5. OXAZEPAM. [Concomitant]
     Active Substance: OXAZEPAM
     Route: 048
  6. VEROSPIRON [Concomitant]
     Active Substance: SPIRONOLACTONE
  7. MILURIT [Concomitant]
     Active Substance: ALLOPURINOL
     Dosage: UNK
  8. TARDYFERON [Concomitant]
     Active Substance: FERROUS SULFATE\FOLIC ACID
     Dosage: UNK
     Route: 048
  9. ZOLOFT [Concomitant]
     Active Substance: SERTRALINE HYDROCHLORIDE
     Route: 048
  10. CONCOR COR [Concomitant]
     Active Substance: BISOPROLOL FUMARATE
     Route: 048
  11. NEURONTIN [Concomitant]
     Active Substance: GABAPENTIN
     Dosage: UNK
  12. CORDARONE [Concomitant]
     Active Substance: AMIODARONE HYDROCHLORIDE
     Dosage: 200 MG, QD
  13. KALIUM CHLORATUM SPOFA [Concomitant]
     Dosage: 500 MG, QD
  14. MELPHALAN [Suspect]
     Active Substance: MELPHALAN
     Indication: AMYLOIDOSIS
     Dosage: 20 MG, UNK
     Route: 048
     Dates: start: 20141230, end: 20150102
  15. EUTHYROX [Concomitant]
     Active Substance: LEVOTHYROXINE SODIUM
     Dosage: UNK
  16. RIVODARON [Concomitant]
     Route: 048
  17. ZALDIAR [Concomitant]
     Active Substance: ACETAMINOPHEN\TRAMADOL HYDROCHLORIDE
     Dosage: UNK, QD
  18. VELCADE [Suspect]
     Active Substance: BORTEZOMIB
     Indication: AMYLOIDOSIS
     Dosage: 2.17 MG, UNK
     Route: 058
     Dates: start: 20141230, end: 20150123
  19. HERPESIN                           /00587301/ [Concomitant]
     Route: 048
  20. AMITRIPTYLINE [Concomitant]
     Active Substance: AMITRIPTYLINE
     Dosage: UNK

REACTIONS (1)
  - Injury [Not Recovered/Not Resolved]

NARRATIVE: CASE EVENT DATE: 20150113
